FAERS Safety Report 13655120 (Version 1)
Quarter: 2017Q2

REPORT INFORMATION
  Report Type: Spontaneous
  Country: US (occurrence: US)
  Receive Date: 20170614
  Receipt Date: 20170614
  Transmission Date: 20170830
  Serious: No
  Sender: FDA-Public Use
  Company Number: None

PATIENT
  Age: 45 Year
  Sex: Male
  Weight: 63.2 kg

DRUGS (1)
  1. VANCOMYCIN 1GM LYPHOMED [Suspect]
     Active Substance: VANCOMYCIN
     Indication: CYSTIC FIBROSIS
     Dosage: 1100MG Q8H IV HOME PUMP
     Route: 042
     Dates: start: 20170601, end: 20170612

REACTIONS (4)
  - Balance disorder [None]
  - Hypoacusis [None]
  - Ear discomfort [None]
  - Therapy cessation [None]

NARRATIVE: CASE EVENT DATE: 20170612
